FAERS Safety Report 4352366-9 (Version None)
Quarter: 2004Q2

REPORT INFORMATION
  Report Type: 
  Country: None (occurrence: None)
  Receive Date: 20040423
  Receipt Date: 20040225
  Transmission Date: 20050107
  Serious: Yes (Other)
  Sender: FDA-Public Use
  Company Number: CIP03003056

PATIENT
  Age: 67 Year
  Sex: Male

DRUGS (2)
  1. MACROBID [Suspect]
     Indication: URINARY TRACT INFECTION
     Dosage: 100 MG DAILY, ORAL
     Route: 048
  2. PROTONIX [Concomitant]

REACTIONS (3)
  - FEELING ABNORMAL [None]
  - JAUNDICE [None]
  - LIVER FUNCTION TEST ABNORMAL [None]
